FAERS Safety Report 18208073 (Version 4)
Quarter: 2020Q3

REPORT INFORMATION
  Report Type: Report from Study
  Country: BR (occurrence: BR)
  Receive Date: 20200828
  Receipt Date: 20200922
  Transmission Date: 20201103
  Serious: Yes (Other)
  Sender: FDA-Public Use
  Company Number: PHHY2019BR209612

PATIENT
  Age: 55 Year
  Sex: Female
  Weight: 79 kg

DRUGS (4)
  1. SANDOSTATIN LAR DEPOT [Suspect]
     Active Substance: OCTREOTIDE ACETATE
     Indication: ACROMEGALY
     Dosage: UNK
     Route: 065
     Dates: start: 20190823
  2. SANDOSTATIN LAR DEPOT [Suspect]
     Active Substance: OCTREOTIDE ACETATE
     Dosage: UNK UNK, QMO
     Route: 058
     Dates: start: 201908
  3. SANDOSTATIN LAR DEPOT [Suspect]
     Active Substance: OCTREOTIDE ACETATE
     Dosage: 30 MG
     Route: 065
     Dates: start: 202008
  4. SANDOSTATIN LAR DEPOT [Suspect]
     Active Substance: OCTREOTIDE ACETATE
     Dosage: 20 MG
     Route: 065
     Dates: start: 20200823

REACTIONS (21)
  - Nasopharyngitis [Recovered/Resolved]
  - Ageusia [Recovering/Resolving]
  - Abdominal pain upper [Recovered/Resolved]
  - Nausea [Recovered/Resolved]
  - Blood pressure increased [Recovered/Resolved]
  - Mouth swelling [Recovering/Resolving]
  - Anosmia [Recovered/Resolved]
  - Oral herpes [Recovering/Resolving]
  - Throat irritation [Unknown]
  - Decreased immune responsiveness [Recovered/Resolved]
  - Pain [Recovered/Resolved]
  - Illness [Recovered/Resolved]
  - Oropharyngeal pain [Recovering/Resolving]
  - Oral contusion [Unknown]
  - Gingival injury [Unknown]
  - Headache [Recovering/Resolving]
  - Suspected COVID-19 [Recovered/Resolved]
  - Injection site pain [Unknown]
  - Musculoskeletal pain [Not Recovered/Not Resolved]
  - Dysphonia [Unknown]
  - Speech disorder [Unknown]

NARRATIVE: CASE EVENT DATE: 201908
